FAERS Safety Report 23707300 (Version 1)
Quarter: 2024Q2

REPORT INFORMATION
  Report Type: Spontaneous
  Country: PT (occurrence: PT)
  Receive Date: 20240404
  Receipt Date: 20240404
  Transmission Date: 20240716
  Serious: Yes (Other)
  Sender: FDA-Public Use
  Company Number: PT-TEVA-VS-3167662

PATIENT
  Age: 39 Year
  Sex: Female

DRUGS (7)
  1. FREMANEZUMAB [Suspect]
     Active Substance: FREMANEZUMAB
     Indication: Migraine
     Route: 058
  2. FREMANEZUMAB [Suspect]
     Active Substance: FREMANEZUMAB
     Indication: Migraine
     Route: 058
  3. AIMOVIG [Suspect]
     Active Substance: ERENUMAB-AOOE
     Dosage: SC
     Route: 065
     Dates: start: 202311
  4. INDERAL [Suspect]
     Active Substance: PROPRANOLOL HYDROCHLORIDE
     Dosage: 40+40 MG PER DAY,
     Route: 065
  5. SUMATRIPTAN SUCCINATE [Suspect]
     Active Substance: SUMATRIPTAN SUCCINATE
     Dosage: SC
     Route: 065
  6. METOCLOPRAMIDE [Suspect]
     Active Substance: METOCLOPRAMIDE
     Route: 065
  7. SERTRALINE [Concomitant]
     Active Substance: SERTRALINE HYDROCHLORIDE
     Indication: Anxiety

REACTIONS (7)
  - Abdominal pain [Unknown]
  - Haemorrhoids [Unknown]
  - Pain [Unknown]
  - Flatulence [Unknown]
  - Aphthous ulcer [Unknown]
  - Arthralgia [Unknown]
  - Migraine [Unknown]
